FAERS Safety Report 16073181 (Version 2)
Quarter: 2019Q2

REPORT INFORMATION
  Report Type: Spontaneous
  Country: US (occurrence: US)
  Receive Date: 20190314
  Receipt Date: 20190516
  Transmission Date: 20190711
  Serious: Yes (Other)
  Sender: FDA-Public Use
  Company Number: US-PFIZER INC-2018532356

PATIENT
  Age: 78 Year
  Sex: Female
  Weight: 67.5 kg

DRUGS (4)
  1. IBRANCE [Suspect]
     Active Substance: PALBOCICLIB
     Indication: BREAST CANCER STAGE IV
     Dosage: 75 MG, CYCLIC (ONCE DAILY, 21 DAYS ON AND 1 WEEK OFF)
     Route: 048
     Dates: start: 201701
  2. SYNTHROID [Concomitant]
     Active Substance: LEVOTHYROXINE SODIUM
     Dosage: UNK
     Dates: start: 1989
  3. ATENOLOL. [Concomitant]
     Active Substance: ATENOLOL
     Dosage: UNK, AS NEEDED
     Dates: start: 2014
  4. FASLODEX [Concomitant]
     Active Substance: FULVESTRANT
     Dosage: UNK
     Dates: start: 201302

REACTIONS (4)
  - Fatigue [Unknown]
  - Pulmonary thrombosis [Unknown]
  - Hypersomnia [Unknown]
  - Hypoacusis [Unknown]

NARRATIVE: CASE EVENT DATE: 201807
